FAERS Safety Report 4437528-4 (Version None)
Quarter: 2004Q3

REPORT INFORMATION
  Report Type: 
  Country: None (occurrence: None)
  Receive Date: 20040827
  Receipt Date: 20040827
  Transmission Date: 20050211
  Serious: Yes (Death)
  Sender: FDA-Public Use
  Company Number: RB-750-2004

PATIENT
  Sex: Male

DRUGS (3)
  1. BUPRENORPHINE HYDROCHLORIDE [Suspect]
     Indication: DRUG DEPENDENCE
     Dosage: SL
     Route: 060
  2. METHADONE HCL [Suspect]
     Indication: DRUG DEPENDENCE
     Dosage: PO
     Route: 048
  3. ALCOHOL [Suspect]

REACTIONS (5)
  - BLOOD ALCOHOL INCREASED [None]
  - DRUG ABUSER [None]
  - MENDELSON'S SYNDROME [None]
  - OVERDOSE [None]
  - PULMONARY OEDEMA [None]
